FAERS Safety Report 11656076 (Version 3)
Quarter: 2015Q4

REPORT INFORMATION
  Report Type: Spontaneous
  Country: US (occurrence: US)
  Receive Date: 20151023
  Receipt Date: 20151218
  Transmission Date: 20160304
  Serious: Yes (Disabling, Other)
  Sender: FDA-Public Use
  Company Number: US-009507513-1510USA010599

PATIENT
  Age: 67 Year
  Sex: Male
  Weight: 89.8 kg

DRUGS (1)
  1. KEYTRUDA [Suspect]
     Active Substance: PEMBROLIZUMAB
     Indication: MALIGNANT MELANOMA
     Dosage: 200 MG, UNK
     Route: 041
     Dates: start: 20150428, end: 20150922

REACTIONS (6)
  - Hypophysitis [Recovered/Resolved]
  - Thyroxine decreased [Unknown]
  - Decreased appetite [Unknown]
  - Blood cholesterol decreased [Unknown]
  - Weight decreased [Unknown]
  - Nausea [Unknown]

NARRATIVE: CASE EVENT DATE: 20150930
